FAERS Safety Report 7733671-2 (Version None)
Quarter: 2011Q3

REPORT INFORMATION
  Report Type: 
  Country: None (occurrence: None)
  Receive Date: 20110907
  Receipt Date: 20110831
  Transmission Date: 20111222
  Serious: Yes (Hospitalization)
  Sender: FDA-Public Use
  Company Number: IS-JNJFOC-20110901683

PATIENT
  Age: 7 Decade
  Sex: Male

DRUGS (1)
  1. NICOTINE [Suspect]
     Indication: MEDICATION ERROR
     Dosage: 2MG USED WHEN NEEDED FOR 2 WEEKS
     Route: 060

REACTIONS (2)
  - WRONG DRUG ADMINISTERED [None]
  - SYNCOPE [None]
